FAERS Safety Report 14570458 (Version 1)
Quarter: 2020Q3

REPORT INFORMATION
  Report Type: Report from Study
  Country: FR (occurrence: FR)
  Receive Date: 20180226
  Receipt Date: 20180226
  Transmission Date: 20201105
  Serious: Yes (Death, Hospitalization)
  Sender: FDA-Public Use
  Company Number: FR-CONCORDIA PHARMACEUTICALS INC.-E2B_00010087

PATIENT
  Age: 43 Year
  Sex: Male
  Weight: 95 kg

DRUGS (10)
  1. METFORMINE MYLAN [Concomitant]
     Active Substance: METFORMIN HYDROCHLORIDE
     Route: 065
  2. ESOMEPRAZOLE. [Concomitant]
     Active Substance: ESOMEPRAZOLE MAGNESIUM
     Route: 065
  3. CRIZOTINIB [Concomitant]
     Active Substance: CRIZOTINIB
  4. DIFFU K [Concomitant]
     Active Substance: POTASSIUM CHLORIDE
     Route: 065
  5. PREDNISOLONE. [Suspect]
     Active Substance: PREDNISOLONE
     Route: 065
  6. ALECTINIB. [Suspect]
     Active Substance: ALECTINIB
     Indication: NON-SMALL CELL LUNG CANCER METASTATIC
     Route: 048
     Dates: start: 201503
  7. CACIT (FRANCE) [Concomitant]
     Route: 065
  8. VIMPAT [Concomitant]
     Active Substance: LACOSAMIDE
     Route: 065
  9. DUROGESIC [Concomitant]
     Active Substance: FENTANYL
     Route: 065
  10. CERITINIB [Concomitant]
     Active Substance: CERITINIB
     Dates: end: 201411

REACTIONS (2)
  - Haematoma [Fatal]
  - Gastrointestinal perforation [Fatal]

NARRATIVE: CASE EVENT DATE: 20151127
